FAERS Safety Report 25140505 (Version 2)
Quarter: 2025Q2

REPORT INFORMATION
  Report Type: Spontaneous
  Country: US (occurrence: US)
  Receive Date: 20250331
  Receipt Date: 20250403
  Transmission Date: 20250717
  Serious: Yes (Other)
  Sender: PFIZER
  Company Number: US-MLMSERVICE-20250317-PI446223-00203-1

PATIENT
  Age: 43 Year
  Sex: Female

DRUGS (2)
  1. METOPROLOL TARTRATE [Suspect]
     Active Substance: METOPROLOL TARTRATE
     Indication: Stress cardiomyopathy
     Dates: start: 2021
  2. LISINOPRIL [Suspect]
     Active Substance: LISINOPRIL
     Indication: Stress cardiomyopathy
     Dates: start: 2021, end: 2022

REACTIONS (1)
  - Labile blood pressure [Unknown]

NARRATIVE: CASE EVENT DATE: 20220101
